FAERS Safety Report 5673063-3 (Version None)
Quarter: 2008Q1

REPORT INFORMATION
  Report Type: 
  Country: None (occurrence: None)
  Receive Date: 20080319
  Receipt Date: 20080206
  Transmission Date: 20080703
  Serious: No
  Sender: FDA-Public Use
  Company Number: US-ASTRAZENECA-2008UW02516

PATIENT
  Age: 66 Year
  Sex: Male
  Weight: 117.9 kg

DRUGS (6)
  1. SYMBICORT [Suspect]
     Indication: ASTHMA
     Route: 055
     Dates: start: 20070801
  2. CLARITHROMYCIN [Concomitant]
  3. SINGULAIR [Concomitant]
  4. AVAPRO [Concomitant]
  5. ALBUTEROL [Concomitant]
  6. ASMANEX TWISTHALER [Concomitant]
     Indication: ASTHMA

REACTIONS (1)
  - EXFOLIATIVE RASH [None]
